FAERS Safety Report 13113306 (Version 1)
Quarter: 2017Q1

REPORT INFORMATION
  Report Type: Spontaneous
  Country: SE (occurrence: SE)
  Receive Date: 20170113
  Receipt Date: 20170113
  Transmission Date: 20170428
  Serious: Yes (Life-Threatening, Hospitalization)
  Sender: FDA-Public Use
  Company Number: SE-TEVA-727039ISR

PATIENT
  Age: 65 Year
  Sex: Female

DRUGS (3)
  1. OXYNORM [Suspect]
     Active Substance: OXYCODONE HYDROCHLORIDE
  2. GABAPENTIN. [Suspect]
     Active Substance: GABAPENTIN
  3. OXYCONTIN [Suspect]
     Active Substance: OXYCODONE HYDROCHLORIDE

REACTIONS (4)
  - Oral mucosal blistering [Recovered/Resolved]
  - Mouth swelling [Recovered/Resolved]
  - Pharyngeal oedema [Recovered/Resolved]
  - Tongue fungal infection [Recovered/Resolved]
